FAERS Safety Report 12433932 (Version 1)
Quarter: 2016Q2

REPORT INFORMATION
  Report Type: Spontaneous
  Country: HU (occurrence: HU)
  Receive Date: 20160603
  Receipt Date: 20160603
  Transmission Date: 20160815
  Serious: Yes (Death, Life-Threatening, Other)
  Sender: FDA-Public Use
  Company Number: HU-ALEXION PHARMACEUTICALS INC-A201603917

PATIENT
  Age: 3 Year
  Sex: Male
  Weight: 11 kg

DRUGS (2)
  1. SOLIRIS [Suspect]
     Active Substance: ECULIZUMAB
     Indication: OFF LABEL USE
  2. SOLIRIS [Suspect]
     Active Substance: ECULIZUMAB
     Indication: THROMBOTIC MICROANGIOPATHY
     Dosage: 300 MG, QW
     Route: 042
     Dates: start: 20160113, end: 20160406

REACTIONS (7)
  - Off label use [Unknown]
  - Bronchopulmonary aspergillosis [Fatal]
  - Stool analysis abnormal [Unknown]
  - Cerebral aspergillosis [Unknown]
  - Gastrointestinal haemorrhage [Recovered/Resolved]
  - Graft versus host disease [Unknown]
  - Immunosuppression [Unknown]

NARRATIVE: CASE EVENT DATE: 20160113
